FAERS Safety Report 11030917 (Version 2)
Quarter: 2015Q2

REPORT INFORMATION
  Report Type: Report from Study
  Country: US (occurrence: US)
  Receive Date: 20150415
  Receipt Date: 20150428
  Transmission Date: 20150821
  Serious: Yes (Hospitalization)
  Sender: FDA-Public Use
  Company Number: US-ACTELION-A-US2015-116063

PATIENT
  Age: 82 Year
  Sex: Female

DRUGS (10)
  1. SERTRALINE [Concomitant]
     Active Substance: SERTRALINE HYDROCHLORIDE
  2. TYLENOL [Concomitant]
     Active Substance: ACETAMINOPHEN
  3. FUROSEMIDE. [Concomitant]
     Active Substance: FUROSEMIDE
  4. SOTALOL. [Concomitant]
     Active Substance: SOTALOL
  5. LISINOPRIL. [Concomitant]
     Active Substance: LISINOPRIL
  6. OCUVITE [Concomitant]
     Active Substance: VITAMINS
  7. SIMVASTATIN. [Concomitant]
     Active Substance: SIMVASTATIN
  8. ASPIRIN. [Concomitant]
     Active Substance: ASPIRIN
  9. TRACLEER [Suspect]
     Active Substance: BOSENTAN\BOSENTAN MONOHYDRATE
     Indication: PULMONARY ARTERIAL HYPERTENSION
     Dosage: UNK
     Route: 048
  10. COUMADIN [Concomitant]
     Active Substance: WARFARIN SODIUM

REACTIONS (1)
  - Urinary tract infection [Unknown]

NARRATIVE: CASE EVENT DATE: 20150331
